FAERS Safety Report 5809623-6 (Version None)
Quarter: 2008Q3

REPORT INFORMATION
  Report Type: 
  Country: None (occurrence: None)
  Receive Date: 20080709
  Receipt Date: 20080703
  Transmission Date: 20090109
  Serious: Yes (Other)
  Sender: FDA-Public Use
  Company Number: 2008SP012105

PATIENT
  Age: 41 Year
  Sex: Female

DRUGS (2)
  1. CLARITIN [Suspect]
     Indication: RASH
     Dosage: 10 MG;  PO
     Route: 048
  2. CEFTRIAXONE [Concomitant]

REACTIONS (2)
  - BLOOD PRESSURE DECREASED [None]
  - SYNCOPE [None]
